FAERS Safety Report 23251278 (Version 1)
Quarter: 2023Q4

REPORT INFORMATION
  Report Type: Report from Study
  Country: FR (occurrence: FR)
  Receive Date: 20231201
  Receipt Date: 20231201
  Transmission Date: 20240109
  Serious: Yes (Hospitalization)
  Sender: FDA-Public Use
  Company Number: FR-ABBVIE-5507062

PATIENT
  Age: 67 Year
  Sex: Male
  Weight: 85.5 kg

DRUGS (17)
  1. EPCORITAMAB [Suspect]
     Active Substance: EPCORITAMAB
     Indication: Follicular lymphoma
     Dosage: 0.16 MG PRIMING DOSE; C1, D1, TOTAL
     Route: 058
     Dates: start: 20231102, end: 20231102
  2. EPCORITAMAB [Suspect]
     Active Substance: EPCORITAMAB
     Dosage: 0.8 MG INTERMEDIATE DOSE; C1, D8, TOTAL
     Route: 058
     Dates: start: 20231109, end: 20231109
  3. EPCORITAMAB [Suspect]
     Active Substance: EPCORITAMAB
     Dosage: 48 MG FULL DOSE; C1, D15 AND 22, TOTAL
     Route: 058
     Dates: start: 20231116
  4. RITUXIMAB [Suspect]
     Active Substance: RITUXIMAB
     Indication: Follicular lymphoma
     Dosage: 100 MG, EVERY 1 WEEKS
     Route: 042
     Dates: start: 20231102, end: 20231102
  5. RITUXIMAB [Suspect]
     Active Substance: RITUXIMAB
     Dosage: 686 MG, EVERY 1 WEEKS
     Route: 042
     Dates: start: 20231103, end: 20231103
  6. RITUXIMAB [Suspect]
     Active Substance: RITUXIMAB
     Dosage: 786 MG, EVERY 1 WEEKS
     Route: 042
     Dates: start: 20231109
  7. LENALIDOMIDE [Suspect]
     Active Substance: LENALIDOMIDE
     Indication: Follicular lymphoma
     Dosage: 20 MG, EVERY 1 DAYS
     Route: 048
     Dates: start: 20231102
  8. FOLIC ACID [Concomitant]
     Active Substance: FOLIC ACID
     Indication: Vitamin supplementation
     Dosage: 5 MILLIGRAM, Q12H
     Dates: start: 20190604
  9. APIXABAN [Concomitant]
     Active Substance: APIXABAN
     Indication: Thrombosis prophylaxis
     Dosage: 2.5 MG, EVERY 12 HOURS
     Dates: start: 20231102
  10. BACTRIM [Concomitant]
     Active Substance: SULFAMETHOXAZOLE\TRIMETHOPRIM
     Indication: Antifungal prophylaxis
     Dosage: 1 DOSAGE FORM, 3/WEEKS
     Dates: start: 20190604
  11. SODIUM BICARBONATE [Concomitant]
     Active Substance: SODIUM BICARBONATE
     Indication: Hypervolaemia
     Dosage: 500 ML, EVERY 1 DAYS
     Dates: start: 20231117
  12. DEXCHLORPHENIRAMINE [DEXCHLORPHENIRAMINE MALEATE] [Concomitant]
     Indication: Prophylaxis
     Dosage: 10 MG, EVERY 1 WEEKS
     Dates: start: 20231102
  13. PANTOPRAZOLE SODIUM [Concomitant]
     Active Substance: PANTOPRAZOLE SODIUM
     Indication: Prophylaxis against gastrointestinal ulcer
     Dosage: 20 MG, EVERY 1 DAYS
     Dates: start: 20231116
  14. ACETAMINOPHEN [Concomitant]
     Active Substance: ACETAMINOPHEN
     Indication: Prophylaxis
     Dosage: 500 MG, EVERY 1 WEEKS
     Dates: start: 20231102
  15. CHLORURE SODIUM [Concomitant]
     Indication: Hypervolaemia
     Dosage: 500 ML, EVERY 1 DAYS
     Dates: start: 20231117
  16. TAMSULOSIN HYDROCHLORIDE [Concomitant]
     Active Substance: TAMSULOSIN HYDROCHLORIDE
     Indication: Dysuria
     Dosage: 0.4 MG, 3/WEEKS
     Dates: start: 20050611
  17. VALACYCLOVIR HYDROCHLORIDE [Concomitant]
     Active Substance: VALACYCLOVIR HYDROCHLORIDE
     Indication: Antiviral prophylaxis
     Dosage: 500 MG, EVERY 1 DAYS
     Dates: start: 20190704

REACTIONS (3)
  - Pyrexia [Recovered/Resolved]
  - C-reactive protein increased [Recovered/Resolved]
  - Cytokine release syndrome [Recovered/Resolved]

NARRATIVE: CASE EVENT DATE: 20231117
